FAERS Safety Report 10354214 (Version 2)
Quarter: 2014Q4

REPORT INFORMATION
  Report Type: Spontaneous
  Country: FR (occurrence: FR)
  Receive Date: 20140731
  Receipt Date: 20141121
  Transmission Date: 20150528
  Serious: Yes (Death, Other)
  Sender: FDA-Public Use
  Company Number: FR-JNJFOC-20140715961

PATIENT
  Age: 36 Year
  Sex: Male

DRUGS (2)
  1. STELARA [Suspect]
     Active Substance: USTEKINUMAB
     Indication: PSORIASIS
     Route: 058
     Dates: start: 20130409, end: 20140401
  2. METOJECT [Suspect]
     Active Substance: METHOTREXATE SODIUM
     Indication: PSORIASIS
     Dosage: 10 MG/ML, SOLUTION FOR INJECTION
     Route: 065
     Dates: start: 20131021, end: 20140325

REACTIONS (3)
  - Hemiparesis [Unknown]
  - Thrombotic thrombocytopenic purpura [Fatal]
  - Seizure [Unknown]

NARRATIVE: CASE EVENT DATE: 20140402
